FAERS Safety Report 15103002 (Version 1)
Quarter: 2018Q3

REPORT INFORMATION
  Report Type: Spontaneous
  Country: US (occurrence: US)
  Receive Date: 20180703
  Receipt Date: 20180703
  Transmission Date: 20181010
  Serious: No
  Sender: FDA-Public Use
  Company Number: US-009507513-1806USA011662

PATIENT
  Sex: Female

DRUGS (1)
  1. NUVARING [Suspect]
     Active Substance: ETHINYL ESTRADIOL\ETONOGESTREL
     Dosage: 1 RING, KEEP IT IN FOR 4 WEEKS REMOVE IT TO INSERT A NEW RING
     Route: 067

REACTIONS (3)
  - Inappropriate schedule of drug administration [Unknown]
  - Intentional medical device removal by patient [Unknown]
  - Incorrect drug administration duration [Unknown]
